FAERS Safety Report 20918770 (Version 1)
Quarter: 2022Q2

REPORT INFORMATION
  Report Type: Spontaneous
  Country: US (occurrence: US)
  Receive Date: 20220606
  Receipt Date: 20220606
  Transmission Date: 20220720
  Serious: Yes (Other)
  Sender: FDA-Public Use
  Company Number: US-MACLEODS PHARMA UK LTD-MAC2022035903

PATIENT

DRUGS (1)
  1. VALSARTAN [Suspect]
     Active Substance: VALSARTAN
     Indication: Hypertension
     Dosage: 80 MILLIGRAM, QD; 80 MG 1 PILL ONCE A DAY
     Route: 065

REACTIONS (4)
  - Gastric ulcer [Unknown]
  - Palpitations [Unknown]
  - Headache [Unknown]
  - Drug ineffective [Unknown]
